FAERS Safety Report 10306144 (Version 3)
Quarter: 2015Q2

REPORT INFORMATION
  Report Type: Report from Study
  Country: US (occurrence: US)
  Receive Date: 20140715
  Receipt Date: 20150618
  Transmission Date: 20150821
  Serious: Yes (Hospitalization, Other)
  Sender: FDA-Public Use
  Company Number: US-BRISTOL-MYERS SQUIBB COMPANY-21175013

PATIENT
  Age: 59 Year
  Sex: Female
  Weight: 98.2 kg

DRUGS (1)
  1. IPILIMUMAB [Suspect]
     Active Substance: IPILIMUMAB
     Indication: MALIGNANT MELANOMA
     Dosage: Q 12 WEEKS ON WEEKS 24, 36, 48, + 60  988MG,LAST DOSE:6MAY14
     Route: 042
     Dates: start: 20140305

REACTIONS (5)
  - Hyperuricaemia [Not Recovered/Not Resolved]
  - Dehydration [Not Recovered/Not Resolved]
  - Blood creatinine increased [Not Recovered/Not Resolved]
  - Adrenal insufficiency [Not Recovered/Not Resolved]
  - Acute kidney injury [Not Recovered/Not Resolved]
